FAERS Safety Report 15109677 (Version 1)
Quarter: 2018Q3

REPORT INFORMATION
  Report Type: Spontaneous
  Country: US (occurrence: US)
  Receive Date: 20180705
  Receipt Date: 20180705
  Transmission Date: 20181010
  Serious: No
  Sender: FDA-Public Use
  Company Number: US-GLENMARK PHARMACEUTICALS-2017GMK029721

PATIENT

DRUGS (3)
  1. GLUCOSAMINE + MSM [Concomitant]
     Indication: SUPPLEMENTATION THERAPY
  2. GLUCOSAMINE + MSM [Concomitant]
     Indication: ARTHRITIS
     Route: 048
  3. MUPIROCIN. [Suspect]
     Active Substance: MUPIROCIN
     Indication: NASAL DISORDER
     Dosage: UNK, BID
     Route: 045
     Dates: start: 20170617, end: 20171104

REACTIONS (5)
  - Product administered at inappropriate site [Unknown]
  - Application site pain [Recovering/Resolving]
  - Insomnia [Unknown]
  - Drug prescribing error [Unknown]
  - Product use in unapproved indication [Unknown]

NARRATIVE: CASE EVENT DATE: 2017
